FAERS Safety Report 11587719 (Version 1)
Quarter: 2015Q4

REPORT INFORMATION
  Report Type: Spontaneous
  Country: US (occurrence: US)
  Receive Date: 20151001
  Receipt Date: 20151001
  Transmission Date: 20160304
  Serious: No
  Sender: FDA-Public Use
  Company Number: US-GLAXOSMITHKLINE-US2015GSK111096

PATIENT

DRUGS (2)
  1. LAMICTAL [Suspect]
     Active Substance: LAMOTRIGINE
     Indication: PRODUCT USED FOR UNKNOWN INDICATION
     Dosage: 100 MG, U
     Dates: start: 2013
  2. LAMOTRIGINE TABLET [Suspect]
     Active Substance: LAMOTRIGINE
     Indication: PRODUCT USED FOR UNKNOWN INDICATION
     Dosage: 100 MG, U
     Dates: start: 2013

REACTIONS (8)
  - Dry mouth [Unknown]
  - Bone disorder [Unknown]
  - Tooth extraction [Unknown]
  - Tooth fracture [Unknown]
  - Vitamin D abnormal [Unknown]
  - Dental caries [Unknown]
  - Tooth disorder [Unknown]
  - Blood calcium abnormal [Unknown]
